FAERS Safety Report 13708925 (Version 1)
Quarter: 2017Q2

REPORT INFORMATION
  Report Type: Spontaneous
  Country: IT (occurrence: IT)
  Receive Date: 20170630
  Receipt Date: 20170630
  Transmission Date: 20170830
  Serious: Yes (Hospitalization, Other)
  Sender: FDA-Public Use
  Company Number: IT-PFIZER INC-2017288074

PATIENT
  Age: 82 Year
  Sex: Male

DRUGS (6)
  1. EFFEXOR [Concomitant]
     Active Substance: VENLAFAXINE HYDROCHLORIDE
  2. LANSOPRAZOL [Concomitant]
     Active Substance: LANSOPRAZOLE
  3. FERRO /00023511/ [Concomitant]
     Dosage: UNK
  4. COAPROVEL [Concomitant]
     Active Substance: HYDROCHLOROTHIAZIDE\IRBESARTAN
  5. RIOPAN /00141701/ [Concomitant]
     Active Substance: MAGALDRATE
     Dosage: UNK
  6. EPINEPHRINE. [Suspect]
     Active Substance: EPINEPHRINE
     Indication: ARTHROPOD STING
     Dosage: UNK
     Route: 058
     Dates: start: 20160801, end: 20160801

REACTIONS (6)
  - Sinus tachycardia [Unknown]
  - Loss of consciousness [Unknown]
  - Electrocardiogram abnormal [Unknown]
  - Syncope [Unknown]
  - Accidental exposure to product [Unknown]
  - Arteriospasm coronary [Unknown]

NARRATIVE: CASE EVENT DATE: 20160801
